FAERS Safety Report 23580839 (Version 1)
Quarter: 2024Q1

REPORT INFORMATION
  Report Type: Spontaneous
  Country: US (occurrence: US)
  Receive Date: 20240229
  Receipt Date: 20240229
  Transmission Date: 20240409
  Serious: Yes (Other)
  Sender: FDA-Public Use
  Company Number: US-JNJFOC-20240263515

PATIENT
  Age: 4 Year
  Sex: Male

DRUGS (1)
  1. CHILDRENS MOTRIN [Suspect]
     Active Substance: IBUPROFEN
     Indication: Influenza
     Route: 048
     Dates: start: 20240219, end: 20240219

REACTIONS (3)
  - Choking [Recovered/Resolved]
  - Foreign body in throat [Recovered/Resolved]
  - Product packaging issue [Unknown]

NARRATIVE: CASE EVENT DATE: 20240219
